FAERS Safety Report 6108477-0 (Version None)
Quarter: 2009Q1

REPORT INFORMATION
  Report Type: 
  Country: None (occurrence: None)
  Receive Date: 20090309
  Receipt Date: 20090305
  Transmission Date: 20090719
  Serious: No
  Sender: FDA-Public Use
  Company Number: US-B.I. PHARMACEUTICALS,INC./RIDGEFIELD-2009-BP-02683BP

PATIENT
  Sex: Female

DRUGS (5)
  1. COMBIVENT [Suspect]
     Indication: ASTHMA
     Dosage: 1PUF
     Route: 055
     Dates: start: 20071201
  2. ASMANEX TWISTHALER [Concomitant]
     Indication: ASTHMA
  3. SYNTHROID [Concomitant]
     Indication: HYPOTHYROIDISM
  4. STATINS [Concomitant]
     Indication: BLOOD CHOLESTEROL INCREASED
  5. VESICARE [Concomitant]
     Indication: MICTURITION DISORDER

REACTIONS (2)
  - COUGH [None]
  - THERAPY REGIMEN CHANGED [None]
